FAERS Safety Report 7038443-2 (Version None)
Quarter: 2010Q4

REPORT INFORMATION
  Report Type: 
  Country: None (occurrence: None)
  Receive Date: 20101011
  Receipt Date: 20100424
  Transmission Date: 20110411
  Serious: No
  Sender: FDA-Public Use
  Company Number: US-PFIZER INC-2010052035

PATIENT
  Sex: Female

DRUGS (2)
  1. NEURONTIN [Suspect]
     Route: 048
  2. GEODON [Suspect]
     Indication: ANXIETY DISORDER
     Dosage: UNK
     Route: 051
     Dates: start: 20100401

REACTIONS (2)
  - DYSPEPSIA [None]
  - REFLUX OESOPHAGITIS [None]
